FAERS Safety Report 4736326-1 (Version None)
Quarter: 2005Q3

REPORT INFORMATION
  Report Type: 
  Country: None (occurrence: None)
  Receive Date: 20050802
  Receipt Date: 20050721
  Transmission Date: 20060218
  Serious: Yes (Other)
  Sender: FDA-Public Use
  Company Number: 2005106267

PATIENT
  Age: 70 Year
  Sex: Female
  Weight: 80 kg

DRUGS (6)
  1. SULFASALAZINE [Suspect]
     Indication: RHEUMATOID ARTHRITIS
     Dosage: 1500 MG (500 MG) ORAL
     Route: 048
     Dates: start: 20050524, end: 20050712
  2. IBUPROFEN [Concomitant]
  3. ACETAMINOPHEN W/ CODEINE [Concomitant]
  4. TRANDOLAPRIL [Concomitant]
  5. DYAZIDE [Concomitant]
  6. RANITIDINE HCL [Concomitant]

REACTIONS (6)
  - ANOREXIA [None]
  - ASTHENIA [None]
  - DYSPNOEA [None]
  - FREQUENT BOWEL MOVEMENTS [None]
  - HEADACHE [None]
  - NAUSEA [None]
